FAERS Safety Report 20973391 (Version 1)
Quarter: 2022Q2

REPORT INFORMATION
  Report Type: Spontaneous
  Country: CN (occurrence: CN)
  Receive Date: 20220617
  Receipt Date: 20220617
  Transmission Date: 20220721
  Serious: Yes (Other)
  Sender: FDA-Public Use
  Company Number: CN-JNJFOC-20220618570

PATIENT
  Age: 87 Year
  Sex: Male
  Weight: 82 kg

DRUGS (3)
  1. FENTANYL [Suspect]
     Active Substance: FENTANYL
     Indication: Lung neoplasm malignant
     Route: 062
     Dates: start: 20220422, end: 20220425
  2. FENTANYL [Suspect]
     Active Substance: FENTANYL
     Indication: Chest pain
  3. FENTANYL [Suspect]
     Active Substance: FENTANYL
     Indication: Abdominal pain

REACTIONS (2)
  - Unresponsive to stimuli [Recovering/Resolving]
  - Disorientation [Recovering/Resolving]

NARRATIVE: CASE EVENT DATE: 20220425
